FAERS Safety Report 6084754-7 (Version None)
Quarter: 2009Q1

REPORT INFORMATION
  Report Type: 
  Country: None (occurrence: None)
  Receive Date: 20090219
  Receipt Date: 20090212
  Transmission Date: 20090719
  Serious: Yes (Hospitalization, Other)
  Sender: FDA-Public Use
  Company Number: FR-ABBOTT-09P-056-0503410-00

PATIENT
  Age: 22 Year
  Sex: Female

DRUGS (2)
  1. KALETRA [Suspect]
     Indication: PROPHYLAXIS AGAINST HIV INFECTION
     Route: 048
     Dates: start: 20081116, end: 20081129
  2. LAMIVUDINE + ZIDOVUDINE [Suspect]
     Indication: PROPHYLAXIS AGAINST HIV INFECTION
     Dates: start: 20081116, end: 20081129

REACTIONS (7)
  - LYMPHADENOPATHY [None]
  - NORMOCHROMIC NORMOCYTIC ANAEMIA [None]
  - PRURIGO [None]
  - PURPURA [None]
  - RASH MACULO-PAPULAR [None]
  - THROMBOCYTOPENIA [None]
  - TRANSAMINASES INCREASED [None]
